FAERS Safety Report 19836294 (Version 2)
Quarter: 2021Q3

REPORT INFORMATION
  Report Type: Spontaneous
  Country: US (occurrence: US)
  Receive Date: 20210916
  Receipt Date: 20210922
  Transmission Date: 20211014
  Serious: Yes (Other)
  Sender: FDA-Public Use
  Company Number: US-AUROBINDO-AUR-APL-2021-038805

PATIENT
  Age: 46 Year
  Sex: Female

DRUGS (7)
  1. PENTOXIFYLLINE. [Concomitant]
     Active Substance: PENTOXIFYLLINE
     Indication: ERYTHROMELALGIA
     Dosage: 400 MILLIGRAM, 3 TIMES A DAY
     Route: 065
  2. ZOLPIDEM [Concomitant]
     Active Substance: ZOLPIDEM TARTRATE
     Indication: INSOMNIA
     Dosage: 10 MILLIGRAM, ONCE A DAY
     Route: 065
  3. TRAMADOL. [Suspect]
     Active Substance: TRAMADOL
     Indication: ERYTHROMELALGIA
     Dosage: 50 MILLIGRAM, 3 TIMES A DAY (AS NEEDED THREE TIMES DAILY)
     Route: 065
  4. OXYCODONE;PARACETAMOL [Concomitant]
     Active Substance: ACETAMINOPHEN\OXYCODONE HYDROCHLORIDE
     Indication: ERYTHROMELALGIA
     Dosage: 10 MILLIGRAM, FOUR TIMES/DAY (AS NEEDED EVERY 6 HOURS)
     Route: 065
  5. CLONAZEPAM. [Concomitant]
     Active Substance: CLONAZEPAM
     Indication: PRODUCT USED FOR UNKNOWN INDICATION
     Dosage: 0.5 MILLIGRAM, TWO TIMES A DAY
     Route: 065
  6. GABAPENTIN. [Concomitant]
     Active Substance: GABAPENTIN
     Indication: ERYTHROMELALGIA
     Dosage: 600 MILLIGRAM, 3 TIMES A DAY
     Route: 065
  7. TRAZODONE [Suspect]
     Active Substance: TRAZODONE HYDROCHLORIDE
     Indication: DEPRESSION
     Dosage: 50 MILLIGRAM, ONCE A DAY (AT NIGHT)
     Route: 065

REACTIONS (1)
  - Serotonin syndrome [Unknown]
